FAERS Safety Report 5879331-4 (Version None)
Quarter: 2008Q3

REPORT INFORMATION
  Report Type: 
  Country: None (occurrence: None)
  Receive Date: 20080912
  Receipt Date: 20080905
  Transmission Date: 20090109
  Serious: Yes (Other)
  Sender: FDA-Public Use
  Company Number: JP-BAYER-200811613BYL

PATIENT
  Age: 79 Year
  Sex: Female
  Weight: 48 kg

DRUGS (4)
  1. ASPIRIN [Suspect]
     Indication: DIZZINESS
     Dosage: TOTAL DAILY DOSE: 100 MG  UNIT DOSE: 100 MG
     Route: 048
     Dates: start: 20040329, end: 20080705
  2. ADALAT CC [Concomitant]
     Indication: HYPERTENSION
     Route: 048
     Dates: start: 20070817
  3. LOXONIN [Concomitant]
     Indication: OSTEOARTHRITIS
     Route: 048
     Dates: start: 20070817
  4. FAMOTIDINE [Concomitant]
     Indication: GASTRITIS
     Route: 048
     Dates: start: 20070817

REACTIONS (2)
  - HAEMATURIA [None]
  - URINARY BLADDER HAEMORRHAGE [None]
